FAERS Safety Report 21963039 (Version 1)
Quarter: 2023Q1

REPORT INFORMATION
  Report Type: Spontaneous
  Country: US (occurrence: US)
  Receive Date: 20230207
  Receipt Date: 20230207
  Transmission Date: 20230418
  Serious: No
  Sender: FDA-Public Use
  Company Number: US-TAKEDA-2023TUS012052

PATIENT
  Age: 20 Year
  Sex: Female

DRUGS (1)
  1. VYVANSE [Suspect]
     Active Substance: LISDEXAMFETAMINE DIMESYLATE
     Indication: Attention deficit hyperactivity disorder
     Dosage: 60 MILLIGRAM
     Route: 065

REACTIONS (3)
  - Feeling abnormal [Not Recovered/Not Resolved]
  - Anxiety [Not Recovered/Not Resolved]
  - Accidental overdose [Unknown]

NARRATIVE: CASE EVENT DATE: 20230201
